FAERS Safety Report 7336780-5 (Version None)
Quarter: 2011Q1

REPORT INFORMATION
  Report Type: 
  Country: None (occurrence: None)
  Receive Date: 20110308
  Receipt Date: 20110224
  Transmission Date: 20110831
  Serious: No
  Sender: FDA-Public Use
  Company Number: US-BIOGENIDEC-2011BI007357

PATIENT
  Age: 40 Year
  Sex: Female

DRUGS (1)
  1. TYSABRI [Suspect]
     Indication: MULTIPLE SCLEROSIS
     Route: 042
     Dates: start: 20100917

REACTIONS (6)
  - ERYTHEMA [None]
  - DRUG HYPERSENSITIVITY [None]
  - SUICIDAL IDEATION [None]
  - DEPRESSED MOOD [None]
  - EAR INFECTION [None]
  - DYSPNOEA [None]
